FAERS Safety Report 9636051 (Version 1)
Quarter: 2013Q4

REPORT INFORMATION
  Report Type: Spontaneous
  Country: US (occurrence: US)
  Receive Date: 20131021
  Receipt Date: 20131021
  Transmission Date: 20140711
  Serious: No
  Sender: FDA-Public Use
  Company Number: US-BAYER-2013-123662

PATIENT
  Age: 44 Year
  Sex: Female
  Weight: 108.84 kg

DRUGS (9)
  1. ALEVE CAPLET [Suspect]
     Indication: ANALGESIC THERAPY
     Dosage: 1 DF, PRN
     Route: 048
  2. JANUMET [Concomitant]
  3. GEMFIBROZIL [Concomitant]
  4. XANAX [Concomitant]
  5. FLAX SEED OIL [Concomitant]
  6. COD LIVER OIL [Concomitant]
  7. GLIPIZIDE [Concomitant]
  8. SIMVASTATIN [Concomitant]
  9. LISINOPRIL [Concomitant]

REACTIONS (3)
  - Throat irritation [Not Recovered/Not Resolved]
  - Oesophageal pain [Recovered/Resolved]
  - Wrong technique in drug usage process [None]
